FAERS Safety Report 5478632-1 (Version None)
Quarter: 2007Q4

REPORT INFORMATION
  Report Type: 
  Country: None (occurrence: None)
  Receive Date: 20071005
  Receipt Date: 20070925
  Transmission Date: 20080405
  Serious: Yes (Other)
  Sender: FDA-Public Use
  Company Number: IE-ELI_LILLY_AND_COMPANY-IE200706004043

PATIENT
  Sex: Female

DRUGS (3)
  1. CYMBALTA [Suspect]
     Indication: DEPRESSION
     Dosage: 60 MG, 2/D
     Route: 065
     Dates: start: 20060401
  2. EFFEXOR [Concomitant]
     Dosage: UNK, UNK
  3. LAMICTAL [Concomitant]
     Indication: DEPRESSION

REACTIONS (4)
  - MACULAR DEGENERATION [None]
  - MYOPIA [None]
  - RETINAL PIGMENTATION [None]
  - VISUAL DISTURBANCE [None]
